FAERS Safety Report 8623200 (Version 6)
Quarter: 2018Q4

REPORT INFORMATION
  Report Type: Spontaneous
  Country: GB (occurrence: GB)
  Receive Date: 20120620
  Receipt Date: 20181101
  Transmission Date: 20190205
  Serious: Yes (Other)
  Sender: FDA-Public Use
  Company Number: GB-ELI_LILLY_AND_COMPANY-GB201206003523

PATIENT
  Age: 16 Year
  Sex: Male
  Weight: 56.4 kg

DRUGS (6)
  1. LORAZEPAM. [Concomitant]
     Active Substance: LORAZEPAM
     Indication: PRODUCT USED FOR UNKNOWN INDICATION
     Dosage: 1 MG, UNKNOWN
     Route: 030
  2. ZYPREXA [Suspect]
     Active Substance: OLANZAPINE
     Indication: PRODUCT USED FOR UNKNOWN INDICATION
     Dosage: 5 MG, PRN
     Route: 030
     Dates: start: 20120521, end: 20120523
  3. OLANZAPINE. [Suspect]
     Active Substance: OLANZAPINE
     Indication: PSYCHOTIC DISORDER
     Dosage: 5 MG, QD
     Route: 048
     Dates: start: 20120524, end: 20120524
  4. ZUCLOPENTHIXOL [Concomitant]
     Active Substance: ZUCLOPENTHIXOL
     Indication: PSYCHOTIC DISORDER
     Dosage: 50 MG, SINGLE
     Route: 030
     Dates: start: 20120523, end: 20120523
  5. ZYPREXA [Suspect]
     Active Substance: OLANZAPINE
     Dosage: 2.5 MG, PRN
     Dates: start: 20120521, end: 20120523
  6. ZYPREXA [Suspect]
     Active Substance: OLANZAPINE
     Indication: PSYCHOTIC DISORDER
     Dosage: 15 MG, QD
     Route: 065
     Dates: start: 20120522

REACTIONS (5)
  - Pericarditis [Recovered/Resolved]
  - Blood creatinine increased [Unknown]
  - Blood thrombin increased [Unknown]
  - Psychotic disorder [Unknown]
  - Myocarditis [Recovered/Resolved]
